FAERS Safety Report 11341996 (Version 2)
Quarter: 2015Q3

REPORT INFORMATION
  Report Type: Not Available
  Country: SE (occurrence: SE)
  Receive Date: 20150805
  Receipt Date: 20150826
  Transmission Date: 20151125
  Serious: Yes (Disabling, Other)
  Sender: FDA-Public Use
  Company Number: SE-MUNDIPHARMA DS AND PHARMACOVIGILANCE-GBR-2015-0029920

PATIENT

DRUGS (8)
  1. MADOPARK QUICK [Suspect]
     Active Substance: BENSERAZIDE HYDROCHLORIDE\LEVODOPA
     Indication: DEMENTIA WITH LEWY BODIES
     Dosage: 2X3 DAILY THEN 1X3 DAILY (100 MG/25 MG)
     Route: 065
     Dates: start: 20090410, end: 20131213
  2. LACTULOSE. [Concomitant]
     Active Substance: LACTULOSE
     Dosage: UNK, DAILY
     Route: 048
  3. ZOLPIDEM [Concomitant]
     Active Substance: ZOLPIDEM\ZOLPIDEM TARTRATE
  4. OXYCONTIN [Suspect]
     Active Substance: OXYCODONE HYDROCHLORIDE
     Indication: BACK PAIN
     Route: 065
     Dates: start: 20070614, end: 20131213
  5. CALCIUM CARBONATE AND VITAMIN D [Concomitant]
  6. PROTELOS [Concomitant]
     Active Substance: STRONTIUM RANELATE
  7. EXELON [Concomitant]
     Active Substance: RIVASTIGMINE TARTRATE
  8. ALVEDON [Concomitant]
     Active Substance: ACETAMINOPHEN

REACTIONS (3)
  - Fatigue [Unknown]
  - Hypoaesthesia [Unknown]
  - Fall [Unknown]

NARRATIVE: CASE EVENT DATE: 2010
